FAERS Safety Report 8155041-8 (Version None)
Quarter: 2012Q1

REPORT INFORMATION
  Report Type: 
  Country: None (occurrence: None)
  Receive Date: 20120221
  Receipt Date: 20120213
  Transmission Date: 20120608
  Serious: Yes (Death, Other)
  Sender: FDA-Public Use
  Company Number: JP-CELGENEUS-087-50794-11122455

PATIENT
  Sex: Female
  Weight: 42 kg

DRUGS (12)
  1. PURSENNID [Concomitant]
     Route: 065
     Dates: end: 20111214
  2. NERIPROCT [Concomitant]
     Route: 065
     Dates: start: 20111210, end: 20111214
  3. MAGMITT [Concomitant]
     Route: 065
     Dates: end: 20111214
  4. SELBEX [Concomitant]
     Route: 065
     Dates: end: 20111214
  5. RABEPRAZOLE SODIUM [Concomitant]
     Route: 065
     Dates: end: 20111214
  6. EXJADE [Concomitant]
     Route: 065
     Dates: end: 20111214
  7. COCARL [Concomitant]
     Route: 065
     Dates: start: 20111210, end: 20111214
  8. VIDAZA [Suspect]
     Indication: MYELODYSPLASTIC SYNDROME
     Dosage: 75 MILLIGRAM/SQ. METER
     Route: 041
     Dates: start: 20111124, end: 20111202
  9. ARGAMATE [Concomitant]
     Route: 065
     Dates: end: 20111214
  10. ASPIRIN [Concomitant]
     Route: 065
  11. LEVOFLOXACIN [Concomitant]
     Route: 065
     Dates: end: 20111214
  12. BIO-THREE [Concomitant]
     Route: 065
     Dates: end: 20111214

REACTIONS (3)
  - ANAL HAEMORRHAGE [None]
  - FEBRILE NEUTROPENIA [None]
  - PULMONARY HAEMORRHAGE [None]
